FAERS Safety Report 12859325 (Version 1)
Quarter: 2016Q4

REPORT INFORMATION
  Report Type: Spontaneous
  Country: US (occurrence: US)
  Receive Date: 20161018
  Receipt Date: 20161018
  Transmission Date: 20170207
  Serious: Yes (Other)
  Sender: FDA-Public Use
  Company Number: US-JNJFOC-20161009493

PATIENT
  Age: 14 Year
  Sex: Male

DRUGS (2)
  1. RISPERDAL [Suspect]
     Active Substance: RISPERIDONE
     Indication: DEPRESSION
     Route: 048
  2. RISPERDAL [Suspect]
     Active Substance: RISPERIDONE
     Indication: ANGER
     Route: 048

REACTIONS (8)
  - Scleral oedema [Unknown]
  - Fall [Unknown]
  - Off label use [Unknown]
  - Fatigue [Unknown]
  - Obesity [Unknown]
  - Product use issue [Unknown]
  - Conjunctivitis [Unknown]
  - Rhinitis [Recovering/Resolving]

NARRATIVE: CASE EVENT DATE: 20060118
